FAERS Safety Report 8309826-5 (Version None)
Quarter: 2012Q2

REPORT INFORMATION
  Report Type: 
  Country: None (occurrence: None)
  Receive Date: 20120425
  Receipt Date: 20120420
  Transmission Date: 20120825
  Serious: Yes (Hospitalization, Other)
  Sender: FDA-Public Use
  Company Number: PHEH2006US05812

PATIENT
  Sex: Female
  Weight: 75.736 kg

DRUGS (11)
  1. LIPITOR [Concomitant]
     Route: 048
  2. ZOMETA [Suspect]
     Dosage: 4 MG, QMO
     Route: 042
     Dates: start: 20020901, end: 20050101
  3. FOSAMAX [Suspect]
  4. HERCEPTIN [Concomitant]
     Indication: BREAST CANCER
     Dates: start: 20000601
  5. ARANESP [Concomitant]
     Dates: start: 20020101
  6. AREDIA [Suspect]
     Indication: METASTASES TO BONE
     Dosage: 90 MG, QMO
     Route: 042
     Dates: start: 20000601, end: 20050101
  7. TAXOL [Concomitant]
     Indication: BREAST CANCER
     Dosage: UNK, QW
     Dates: start: 20040101, end: 20050101
  8. NAVELBINE [Concomitant]
     Indication: BREAST CANCER
     Dates: start: 20000601
  9. ZOMETA [Suspect]
     Indication: METASTASES TO BONE
     Dosage: 4 MG, QMO
     Route: 042
     Dates: start: 20020604, end: 20020702
  10. DOCETAXEL [Concomitant]
  11. ASPIRIN [Concomitant]

REACTIONS (64)
  - SINUS CANCER METASTATIC [None]
  - LYMPHADENOPATHY [None]
  - PYREXIA [None]
  - PELVIC PAIN [None]
  - PELVIC FRACTURE [None]
  - HEARING IMPAIRED [None]
  - ARTHRALGIA [None]
  - ATRIOVENTRICULAR BLOCK COMPLETE [None]
  - SINUSITIS [None]
  - VOCAL CORD PARALYSIS [None]
  - DYSPHONIA [None]
  - ANAEMIA [None]
  - GAIT DISTURBANCE [None]
  - ABDOMINAL PAIN [None]
  - DYSPNOEA [None]
  - VOMITING [None]
  - GINGIVAL INFECTION [None]
  - OSTEITIS [None]
  - PURULENCE [None]
  - ERYTHEMA [None]
  - SWELLING FACE [None]
  - ACTINOMYCOSIS [None]
  - HYDRONEPHROSIS [None]
  - THYROID DISORDER [None]
  - DEEP VEIN THROMBOSIS [None]
  - CARDIAC DISORDER [None]
  - VISUAL IMPAIRMENT [None]
  - PAIN IN EXTREMITY [None]
  - RIB FRACTURE [None]
  - CELLULITIS [None]
  - CORONARY ARTERY DISEASE [None]
  - HYPOAESTHESIA [None]
  - NAUSEA [None]
  - SINUS BRADYCARDIA [None]
  - DEVICE FAILURE [None]
  - RENAL FAILURE ACUTE [None]
  - CONSTIPATION [None]
  - DIARRHOEA [None]
  - ANXIETY [None]
  - OSTEOMYELITIS [None]
  - ASTHENIA [None]
  - BONE LOSS [None]
  - OROANTRAL FISTULA [None]
  - BONE DISORDER [None]
  - UPPER-AIRWAY COUGH SYNDROME [None]
  - DYSGEUSIA [None]
  - ACUTE MYOCARDIAL INFARCTION [None]
  - SINGLE FUNCTIONAL KIDNEY [None]
  - HYPERHIDROSIS [None]
  - INFECTION [None]
  - CARDIAC MURMUR [None]
  - LIMB INJURY [None]
  - URINARY TRACT INFECTION [None]
  - VENTRICULAR EXTRASYSTOLES [None]
  - DIZZINESS [None]
  - OSTEONECROSIS OF JAW [None]
  - PAIN [None]
  - HAEMORRHAGE [None]
  - PRIMARY SEQUESTRUM [None]
  - TUMOUR MARKER INCREASED [None]
  - BREATH ODOUR [None]
  - INFLUENZA LIKE ILLNESS [None]
  - HYPERTENSION [None]
  - DYSPHAGIA [None]
